FAERS Safety Report 9088018 (Version 1)
Quarter: 2013Q1

REPORT INFORMATION
  Report Type: Report from Study
  Country: US (occurrence: US)
  Receive Date: 20130130
  Receipt Date: 20130130
  Transmission Date: 20140127
  Serious: No
  Sender: FDA-Public Use
  Company Number: US-ABBOTT-12P-163-0983795-00

PATIENT
  Age: 56 None
  Sex: Male
  Weight: 70.37 kg

DRUGS (2)
  1. HUMIRA [Suspect]
     Indication: CROHN^S DISEASE
     Route: 058
     Dates: start: 2008, end: 201201
  2. HUMIRA [Suspect]
     Route: 058
     Dates: start: 201201

REACTIONS (4)
  - Oropharyngeal pain [Recovered/Resolved]
  - Candida infection [Recovered/Resolved]
  - Oropharyngeal pain [Recovering/Resolving]
  - Candida infection [Recovering/Resolving]
